FAERS Safety Report 4730048-9 (Version None)
Quarter: 2005Q3

REPORT INFORMATION
  Report Type: 
  Country: None (occurrence: None)
  Receive Date: 20050801
  Receipt Date: 20050721
  Transmission Date: 20060218
  Serious: Yes (Hospitalization, Other)
  Sender: FDA-Public Use
  Company Number: GB-JNJFOC-20050704225

PATIENT
  Sex: Male
  Weight: 86 kg

DRUGS (5)
  1. REMICADE [Suspect]
     Indication: RHEUMATOID ARTHRITIS
     Route: 042
  2. MOTIFENE [Concomitant]
     Route: 065
  3. FOLIC ACID [Concomitant]
     Route: 065
  4. METHOTREXATE [Concomitant]
     Route: 065
  5. EYE DROPS [Concomitant]
     Route: 065

REACTIONS (5)
  - CHILLS [None]
  - DIARRHOEA [None]
  - DIZZINESS [None]
  - LOWER RESPIRATORY TRACT INFECTION [None]
  - PYREXIA [None]
